FAERS Safety Report 22285387 (Version 1)
Quarter: 2023Q2

REPORT INFORMATION
  Report Type: Spontaneous
  Country: CN (occurrence: CN)
  Receive Date: 20230504
  Receipt Date: 20230504
  Transmission Date: 20230722
  Serious: Yes (Other)
  Sender: FDA-Public Use
  Company Number: CN-PFIZER INC-PV202300077158

PATIENT
  Sex: Female

DRUGS (1)
  1. AVIBACTAM SODIUM\CEFTAZIDIME [Suspect]
     Active Substance: AVIBACTAM SODIUM\CEFTAZIDIME
     Indication: Infection
     Dosage: 2.5 G, BID
     Route: 041
     Dates: start: 20230330, end: 20230404

REACTIONS (4)
  - Cerebral haemorrhage [Unknown]
  - Depressed level of consciousness [Unknown]
  - Coma [Unknown]
  - Mydriasis [Unknown]

NARRATIVE: CASE EVENT DATE: 20230402
